FAERS Safety Report 9546992 (Version 2)
Quarter: 2014Q1

REPORT INFORMATION
  Report Type: Spontaneous
  Country: US (occurrence: None)
  Receive Date: 20130606
  Receipt Date: 20130606
  Transmission Date: 20141002
  Serious: No
  Sender: FDA-Public Use
  Company Number: 2012PROUSA02429

PATIENT
  Age: 73 Year
  Sex: Male
  Weight: 74.4 kg

DRUGS (2)
  1. PROVENGE [Suspect]
     Indication: PROSTATE CANCER METASTATIC
     Route: 042
     Dates: start: 20121207, end: 20121207
  2. LEVAQUIN (LEVOFLOXACIN) [Concomitant]

REACTIONS (5)
  - Haemoptysis [None]
  - White blood cell count increased [None]
  - Pyrexia [None]
  - Nausea [None]
  - Urinary tract infection [None]
